FAERS Safety Report 6142742-6 (Version None)
Quarter: 2009Q2

REPORT INFORMATION
  Report Type: 
  Country: None (occurrence: None)
  Receive Date: 20090402
  Receipt Date: 20090402
  Transmission Date: 20091009
  Serious: No
  Sender: FDA-Public Use
  Company Number: None

PATIENT
  Age: 74 Year
  Sex: Male
  Weight: 81.2 kg

DRUGS (1)
  1. SORAFENIB [Suspect]
     Dosage: 400 MG BID PO
     Route: 048
     Dates: start: 20080624

REACTIONS (2)
  - PALMAR-PLANTAR ERYTHRODYSAESTHESIA SYNDROME [None]
  - SEBORRHOEA [None]
